FAERS Safety Report 18235504 (Version 1)
Quarter: 2020Q3

REPORT INFORMATION
  Report Type: Spontaneous
  Country: US (occurrence: US)
  Receive Date: 20200905
  Receipt Date: 20200905
  Transmission Date: 20201103
  Serious: No
  Sender: FDA-Public Use
  Company Number: US-ACCORD-155998

PATIENT
  Age: 68 Year
  Sex: Male
  Weight: 102.06 kg

DRUGS (2)
  1. NALTREXONE ACCORD [Suspect]
     Active Substance: NALTREXONE HYDROCHLORIDE
     Indication: DEPENDENCE
     Dosage: ONCE A DAY
     Route: 048
     Dates: start: 20190918, end: 20190919
  2. TYLENOL [Concomitant]
     Active Substance: ACETAMINOPHEN
     Indication: ANALGESIC THERAPY
     Dosage: 3 TABLETS, TWICE A DAY

REACTIONS (3)
  - Product dose omission issue [Unknown]
  - Feeling abnormal [Not Recovered/Not Resolved]
  - Pain [Not Recovered/Not Resolved]

NARRATIVE: CASE EVENT DATE: 20190919
